FAERS Safety Report 12486977 (Version 1)
Quarter: 2016Q2

REPORT INFORMATION
  Report Type: Spontaneous
  Country: US (occurrence: None)
  Receive Date: 20160621
  Receipt Date: 20160621
  Transmission Date: 20160815
  Serious: Yes (Hospitalization)
  Sender: FDA-Public Use
  Company Number: None

PATIENT
  Age: 37 Year
  Sex: Female
  Weight: 58.97 kg

DRUGS (1)
  1. CYCLOBENZAPRINE [Suspect]
     Active Substance: CYCLOBENZAPRINE
     Indication: POSTOPERATIVE CARE
     Route: 048
     Dates: start: 20160615, end: 20160618

REACTIONS (2)
  - Urinary retention [None]
  - Painful defaecation [None]

NARRATIVE: CASE EVENT DATE: 20160617
